FAERS Safety Report 24605087 (Version 1)
Quarter: 2024Q4

REPORT INFORMATION
  Report Type: Spontaneous
  Country: US (occurrence: US)
  Receive Date: 20241111
  Receipt Date: 20241111
  Transmission Date: 20250114
  Serious: No
  Sender: PARATEK PHARMACEUTICALS
  Company Number: US-PARATEK PHARMACEUTICALS, INC.-2024PTK00702

PATIENT

DRUGS (13)
  1. NUZYRA [Suspect]
     Active Substance: OMADACYCLINE
     Route: 065
  2. ZYLOPRIM [Concomitant]
     Active Substance: ALLOPURINOL
  3. XANAX [Concomitant]
     Active Substance: ALPRAZOLAM
  4. NORVASC [Concomitant]
     Active Substance: AMLODIPINE BESYLATE
  5. ERGOCALCIFEROL [Concomitant]
     Active Substance: ERGOCALCIFEROL
  6. ZETIA [Concomitant]
     Active Substance: EZETIMIBE
  7. LASIX [Concomitant]
     Active Substance: FUROSEMIDE
  8. ATARAX [Concomitant]
     Active Substance: HYDROXYZINE HYDROCHLORIDE
  9. COZAAR [Concomitant]
     Active Substance: LOSARTAN POTASSIUM
  10. METFORMIN [Concomitant]
     Active Substance: METFORMIN HYDROCHLORIDE
  11. PITAVASTATIN CALCIUM [Concomitant]
     Active Substance: PITAVASTATIN CALCIUM
  12. CIALIS [Concomitant]
     Active Substance: TADALAFIL
  13. MOUNJARO [Concomitant]
     Active Substance: TIRZEPATIDE

REACTIONS (1)
  - Rash [Recovered/Resolved]
